FAERS Safety Report 8249722 (Version 2)
Quarter: 2015Q2

REPORT INFORMATION
  Report Type: Spontaneous
  Country: US (occurrence: US)
  Receive Date: 20111117
  Receipt Date: 20150407
  Transmission Date: 20150821
  Serious: Yes (Other)
  Sender: FDA-Public Use
  Company Number: CHPA2011US016042

PATIENT
  Age: 64 Year
  Sex: Female

DRUGS (3)
  1. PREVACID [Suspect]
     Active Substance: LANSOPRAZOLE
     Indication: GASTROOESOPHAGEAL REFLUX DISEASE
     Dosage: 30 MG, QD
     Route: 048
     Dates: start: 2009
  2. PREVACID [Suspect]
     Active Substance: LANSOPRAZOLE
     Dosage: 45 MG, QD
     Route: 048
  3. PREVACID [Suspect]
     Active Substance: LANSOPRAZOLE
     Indication: NAUSEA
     Dosage: 15 MG, QD
     Route: 048

REACTIONS (6)
  - Incorrect drug administration duration [Unknown]
  - Drug ineffective for unapproved indication [Unknown]
  - Chest pain [Recovered/Resolved]
  - Prescribed overdose [Unknown]
  - Hiatus hernia [Unknown]
  - Product use issue [Unknown]

NARRATIVE: CASE EVENT DATE: 2009
